FAERS Safety Report 22356423 (Version 1)
Quarter: 2023Q2

REPORT INFORMATION
  Report Type: Spontaneous
  Country: CN (occurrence: CN)
  Receive Date: 20230523
  Receipt Date: 20230523
  Transmission Date: 20230722
  Serious: Yes (Other)
  Sender: FDA-Public Use
  Company Number: CN-MYLANLABS-2023M1052256

PATIENT
  Age: 67 Year
  Sex: Male

DRUGS (4)
  1. LIPITOR [Suspect]
     Active Substance: ATORVASTATIN CALCIUM
     Indication: Renal failure
     Dosage: 20 MILLIGRAM, QD
     Route: 048
     Dates: start: 20230508, end: 20230515
  2. LIPITOR [Suspect]
     Active Substance: ATORVASTATIN CALCIUM
     Indication: Arteriosclerosis
  3. TEPRENONE [Concomitant]
     Active Substance: TEPRENONE
     Indication: Renal failure
     Dosage: 50 MILLIGRAM, TID
     Route: 048
     Dates: start: 20230508, end: 20230516
  4. TEPRENONE [Concomitant]
     Active Substance: TEPRENONE
     Indication: Arteriosclerosis

REACTIONS (1)
  - Drug-induced liver injury [Recovered/Resolved]

NARRATIVE: CASE EVENT DATE: 20230509
